FAERS Safety Report 12624874 (Version 1)
Quarter: 2016Q3

REPORT INFORMATION
  Report Type: Spontaneous
  Country: US (occurrence: None)
  Receive Date: 20160804
  Receipt Date: 20160804
  Transmission Date: 20161109
  Serious: Yes (Disabling)
  Sender: FDA-Public Use
  Company Number: None

PATIENT
  Age: 64 Year
  Sex: Female
  Weight: 43.55 kg

DRUGS (7)
  1. PRO-BIOTIC TABLET [Concomitant]
  2. LANTUS [Concomitant]
     Active Substance: INSULIN GLARGINE
  3. L-THYROXINE [Concomitant]
     Active Substance: LEVOTHYROXINE
  4. VALACYCLOVIR [Suspect]
     Active Substance: VALACYCLOVIR HYDROCHLORIDE
     Indication: HERPES VIRUS INFECTION
     Route: 048
     Dates: start: 20060816, end: 20150310
  5. VALTREX [Suspect]
     Active Substance: VALACYCLOVIR HYDROCHLORIDE
  6. HUMALOG [Concomitant]
     Active Substance: INSULIN LISPRO
  7. WOMEN^S VITAMINS [Concomitant]

REACTIONS (2)
  - Dysmenorrhoea [None]
  - Epigastric discomfort [None]

NARRATIVE: CASE EVENT DATE: 20160722
